FAERS Safety Report 10924664 (Version 2)
Quarter: 2015Q3

REPORT INFORMATION
  Report Type: Spontaneous
  Country: US (occurrence: None)
  Receive Date: 20150129
  Receipt Date: 20150629
  Transmission Date: 20151125
  Serious: No
  Sender: FDA-Public Use
  Company Number: A-US2014-103382

PATIENT
  Age: 23 Year
  Sex: Female

DRUGS (4)
  1. VELETRI (EPOPROSTENOL SODIUM) [Concomitant]
     Active Substance: EPOPROSTENOL SODIUM
  2. SILDENAFIL. [Concomitant]
     Active Substance: SILDENAFIL
  3. OPSUMIT [Suspect]
     Active Substance: MACITENTAN
     Indication: PULMONARY ARTERIAL HYPERTENSION
     Route: 048
     Dates: start: 20130910
  4. FLOLAN [Suspect]
     Active Substance: EPOPROSTENOL SODIUM
     Indication: PULMONARY ARTERIAL HYPERTENSION
     Dosage: 91 NG/KG, PER MIN, INTRAVENOUS
     Route: 042
     Dates: start: 20130711

REACTIONS (2)
  - Pregnancy [None]
  - Live birth [None]
